FAERS Safety Report 6135553-9 (Version None)
Quarter: 2009Q1

REPORT INFORMATION
  Report Type: 
  Country: None (occurrence: None)
  Receive Date: 20090327
  Receipt Date: 20090319
  Transmission Date: 20090719
  Serious: Yes (Hospitalization, Disabling, Other)
  Sender: FDA-Public Use
  Company Number: PHHY2008CR31027

PATIENT
  Age: 64 Year
  Sex: Female

DRUGS (7)
  1. EXELON [Suspect]
     Indication: VASCULAR DEMENTIA
     Dosage: 1.5 MG, UNK
     Route: 048
     Dates: start: 20081011
  2. AKATINOL [Suspect]
     Dosage: HALF A TABLET IN WEEK
     Dates: start: 20081011
  3. AKATINOL [Suspect]
     Dosage: ONE TABLET IN WEEK
  4. AKATINOL [Suspect]
     Dosage: 1 DF, BID
  5. LEVOTIROXINA [Concomitant]
     Dosage: 100 MG PER DAY
     Route: 048
  6. ASCORBIC ACID [Concomitant]
  7. VITAMIN E [Concomitant]

REACTIONS (5)
  - APALLIC SYNDROME [None]
  - CEREBRAL ISCHAEMIA [None]
  - CEREBRAL THROMBOSIS [None]
  - CONVULSION [None]
  - HEMIPLEGIA [None]
